FAERS Safety Report 18767114 (Version 1)
Quarter: 2021Q1

REPORT INFORMATION
  Report Type: Spontaneous
  Country: GB (occurrence: GB)
  Receive Date: 20210121
  Receipt Date: 20210121
  Transmission Date: 20210419
  Serious: Yes (Life-Threatening, Other)
  Sender: FDA-Public Use
  Company Number: GB-PFIZER INC-2021016967

PATIENT
  Age: 53 Year
  Sex: Male

DRUGS (6)
  1. CLONIDINE. [Concomitant]
     Active Substance: CLONIDINE
     Indication: SEDATIVE THERAPY
     Dosage: UNK
  2. PROPOFOL. [Concomitant]
     Active Substance: PROPOFOL
     Indication: SEDATIVE THERAPY
     Dosage: UNK
  3. METHYLPREDNISOLONE. [Suspect]
     Active Substance: METHYLPREDNISOLONE
     Indication: SEPSIS
     Dosage: 1 G
     Route: 042
  4. METHYLPREDNISOLONE. [Suspect]
     Active Substance: METHYLPREDNISOLONE
     Dosage: 500 UG
     Route: 042
  5. METHYLPREDNISOLONE. [Suspect]
     Active Substance: METHYLPREDNISOLONE
     Dosage: 500 UG
     Route: 042
  6. FENTANYL. [Concomitant]
     Active Substance: FENTANYL
     Indication: SEDATIVE THERAPY
     Dosage: UNK

REACTIONS (1)
  - Acute disseminated encephalomyelitis [Unknown]
